FAERS Safety Report 9399756 (Version 2)
Quarter: 2013Q4

REPORT INFORMATION
  Report Type: Spontaneous
  Country: US (occurrence: US)
  Receive Date: 20130715
  Receipt Date: 20131108
  Transmission Date: 20140711
  Serious: Yes (Hospitalization)
  Sender: FDA-Public Use
  Company Number: US-BAYER-2013-083234

PATIENT
  Age: 26 Year
  Sex: Female
  Weight: 106.58 kg

DRUGS (5)
  1. MIRENA [Suspect]
     Indication: CONTRACEPTION
     Dosage: 20 MCG/24HR, CONT
     Route: 015
     Dates: start: 2010, end: 20110708
  2. FLAGYL [Concomitant]
  3. LORTAB [Concomitant]
  4. ZITHROMAX [Concomitant]
  5. ROCEPHINE [Concomitant]

REACTIONS (7)
  - Embedded device [None]
  - Device difficult to use [None]
  - Injury [None]
  - Medical device pain [None]
  - Device dislocation [None]
  - Pain [None]
  - Emotional distress [None]
